FAERS Safety Report 8054631-0 (Version None)
Quarter: 2012Q1

REPORT INFORMATION
  Report Type: 
  Country: None (occurrence: None)
  Receive Date: 20120119
  Receipt Date: 20120109
  Transmission Date: 20120608
  Serious: Yes (Death, Other)
  Sender: FDA-Public Use
  Company Number: TR-AMGEN-TURSP2012002492

PATIENT
  Age: 74 Year
  Sex: Female

DRUGS (1)
  1. ENBREL [Suspect]
     Indication: RHEUMATOID ARTHRITIS
     Dosage: 50 MG, WEEKLY
     Route: 058
     Dates: start: 20110711, end: 20111210

REACTIONS (6)
  - DYSPNOEA [None]
  - FLATULENCE [None]
  - OVARIAN CANCER [None]
  - PAIN [None]
  - DEATH [None]
  - ASTHENIA [None]
